FAERS Safety Report 8421362-4 (Version None)
Quarter: 2012Q2

REPORT INFORMATION
  Report Type: 
  Country: None (occurrence: None)
  Receive Date: 20120608
  Receipt Date: 20120604
  Transmission Date: 20120825
  Serious: Yes (Hospitalization)
  Sender: FDA-Public Use
  Company Number: PHHY2011AU90817

PATIENT
  Sex: Male
  Weight: 91 kg

DRUGS (1)
  1. ZOLEDRONOC ACID [Suspect]
     Dosage: 5 MG
     Route: 042

REACTIONS (2)
  - URINARY INCONTINENCE [None]
  - DRY MOUTH [None]
